FAERS Safety Report 9692780 (Version 1)
Quarter: 2013Q4

REPORT INFORMATION
  Report Type: Spontaneous
  Country: AT (occurrence: AT)
  Receive Date: 20131118
  Receipt Date: 20131118
  Transmission Date: 20140711
  Serious: No
  Sender: FDA-Public Use
  Company Number: AT-JNJFOC-20131104566

PATIENT
  Age: 78 Year
  Sex: Female

DRUGS (2)
  1. DUROGESIC [Suspect]
     Indication: NECK PAIN
     Route: 062
  2. TRAMAL [Concomitant]

REACTIONS (3)
  - Product quality issue [Unknown]
  - Wrong technique in drug usage process [Unknown]
  - Drug ineffective [Unknown]
